FAERS Safety Report 20643420 (Version 1)
Quarter: 2022Q1

REPORT INFORMATION
  Report Type: Spontaneous
  Country: US (occurrence: None)
  Receive Date: 20220326
  Receipt Date: 20220326
  Transmission Date: 20220423
  Serious: Yes (unspecified)
  Sender: FDA-Public Use
  Company Number: None

PATIENT
  Age: 40 Year
  Sex: Female
  Weight: 81.9 kg

DRUGS (10)
  1. .DELTA.8-TETRAHYDROCANNABINOL\CANNABIDIOL\HERBALS [Suspect]
     Active Substance: .DELTA.8-TETRAHYDROCANNABINOL\CANNABIDIOL\HERBALS
     Indication: Pain
     Dosage: OTHER QUANTITY : 1 GUMMY;?FREQUENCY : EVERY 12 HOURS;?
     Route: 048
     Dates: start: 20220325, end: 20220325
  2. .DELTA.8-TETRAHYDROCANNABINOL\CANNABIDIOL\HERBALS [Suspect]
     Active Substance: .DELTA.8-TETRAHYDROCANNABINOL\CANNABIDIOL\HERBALS
     Indication: Arthralgia
  3. ZOLOFT [Concomitant]
     Active Substance: SERTRALINE HYDROCHLORIDE
  4. GABAPENTIN [Concomitant]
     Active Substance: GABAPENTIN
  5. METOPROLOL [Concomitant]
     Active Substance: METOPROLOL
  6. VITAMIN D [Concomitant]
     Active Substance: VITAMIN D NOS
  7. RIBOFLAVIN [Concomitant]
     Active Substance: RIBOFLAVIN
  8. MAGNESIUM [Concomitant]
     Active Substance: MAGNESIUM
  9. ZYRTEC [Concomitant]
     Active Substance: CETIRIZINE HYDROCHLORIDE
  10. FLONASE [Concomitant]
     Active Substance: FLUTICASONE PROPIONATE

REACTIONS (8)
  - Euphoric mood [None]
  - Panic attack [None]
  - Pain [None]
  - Nausea [None]
  - Tremor [None]
  - Insomnia [None]
  - Decreased appetite [None]
  - Dry mouth [None]

NARRATIVE: CASE EVENT DATE: 20220325
